FAERS Safety Report 22089618 (Version 1)
Quarter: 2023Q1

REPORT INFORMATION
  Report Type: Spontaneous
  Country: JP (occurrence: JP)
  Receive Date: 20230313
  Receipt Date: 20230313
  Transmission Date: 20230418
  Serious: Yes (Death, Hospitalization)
  Sender: FDA-Public Use
  Company Number: JP-DSJP-DSJ-2021-141219

PATIENT
  Age: 58 Year
  Sex: Female
  Weight: 39 kg

DRUGS (13)
  1. ENHERTU [Suspect]
     Active Substance: FAM-TRASTUZUMAB DERUXTECAN-NXKI
     Indication: HER2 positive breast cancer
     Dosage: 4.1 MG/KG, ONCE EVERY 3 WK
     Route: 041
     Dates: start: 20210525, end: 20210525
  2. ENHERTU [Suspect]
     Active Substance: FAM-TRASTUZUMAB DERUXTECAN-NXKI
     Dosage: 4.6 MG/KG, ONCE EVERY 3 WK
     Route: 041
     Dates: start: 20210616, end: 20210616
  3. ENHERTU [Suspect]
     Active Substance: FAM-TRASTUZUMAB DERUXTECAN-NXKI
     Dosage: 4.6 MG/KG, ONCE EVERY 3 WK
     Route: 041
     Dates: start: 20210707, end: 20210707
  4. ENHERTU [Suspect]
     Active Substance: FAM-TRASTUZUMAB DERUXTECAN-NXKI
     Dosage: 4.6 MG/KG, ONCE EVERY 3 WK
     Route: 041
     Dates: start: 20210728, end: 20210728
  5. ENHERTU [Suspect]
     Active Substance: FAM-TRASTUZUMAB DERUXTECAN-NXKI
     Dosage: 5.1 MG/KG, ONCE EVERY 3 WK
     Route: 041
     Dates: start: 20210818, end: 20210818
  6. ENHERTU [Suspect]
     Active Substance: FAM-TRASTUZUMAB DERUXTECAN-NXKI
     Dosage: 5.1 MG/KG, ONCE EVERY 3 WK
     Route: 041
     Dates: start: 20210908, end: 20210908
  7. ENHERTU [Suspect]
     Active Substance: FAM-TRASTUZUMAB DERUXTECAN-NXKI
     Dosage: 5.1 MG/KG, ONCE EVERY 3 WK
     Route: 041
     Dates: start: 20210929, end: 20210929
  8. ENHERTU [Suspect]
     Active Substance: FAM-TRASTUZUMAB DERUXTECAN-NXKI
     Dosage: 5.1 MG/KG, ONCE EVERY 3 WK
     Route: 041
     Dates: start: 20211020, end: 20211020
  9. ENHERTU [Suspect]
     Active Substance: FAM-TRASTUZUMAB DERUXTECAN-NXKI
     Dosage: 5.1 MG/KG, ONCE EVERY 3 WK
     Route: 041
     Dates: start: 20211110, end: 20211110
  10. ENHERTU [Suspect]
     Active Substance: FAM-TRASTUZUMAB DERUXTECAN-NXKI
     Dosage: 5.1 MG/KG, ONCE EVERY 3 WK
     Route: 041
     Dates: start: 20211201, end: 20211201
  11. ENHERTU [Suspect]
     Active Substance: FAM-TRASTUZUMAB DERUXTECAN-NXKI
     Dosage: 5.1 MG/KG, ONCE EVERY 3 WK
     Route: 041
     Dates: start: 20211222, end: 20211222
  12. ENHERTU [Suspect]
     Active Substance: FAM-TRASTUZUMAB DERUXTECAN-NXKI
     Dosage: 5.1 MG/KG, ONCE EVERY 3 WK
     Route: 041
     Dates: start: 20220112, end: 20220112
  13. ENHERTU [Suspect]
     Active Substance: FAM-TRASTUZUMAB DERUXTECAN-NXKI
     Dosage: 5.1 MG/KG, ONCE EVERY 3 WK
     Route: 041
     Dates: start: 20220202, end: 20220202

REACTIONS (3)
  - Disease progression [Fatal]
  - Femoral neck fracture [Recovered/Resolved]
  - Underdose [Unknown]

NARRATIVE: CASE EVENT DATE: 20210525
